FAERS Safety Report 4891983-4 (Version None)
Quarter: 2006Q1

REPORT INFORMATION
  Report Type: 
  Country: None (occurrence: None)
  Receive Date: 20060124
  Receipt Date: 20060124
  Transmission Date: 20060701
  Serious: Yes (Death)
  Sender: FDA-Public Use
  Company Number: None

PATIENT
  Age: 10 Year
  Sex: Female

DRUGS (4)
  1. CLOFARABINE 50 MG IV [Suspect]
     Indication: ACUTE LYMPHOCYTIC LEUKAEMIA
     Dosage: ONCE DAILY X 5 DAYS
     Dates: start: 20051015
  2. ONDANSETRON [Concomitant]
  3. CEFEPIME [Concomitant]
  4. ALLOPURINOL [Concomitant]

REACTIONS (3)
  - CAPILLARY LEAK SYNDROME [None]
  - RESPIRATORY DISTRESS [None]
  - STRIDOR [None]
